FAERS Safety Report 24683905 (Version 1)
Quarter: 2024Q4

REPORT INFORMATION
  Report Type: Spontaneous
  Country: SE (occurrence: SE)
  Receive Date: 20241202
  Receipt Date: 20241202
  Transmission Date: 20250114
  Serious: Yes (Other)
  Sender: JUBILANT
  Company Number: None

PATIENT
  Age: 17 Year
  Sex: Female

DRUGS (5)
  1. RISPERIDONE [Suspect]
     Active Substance: RISPERIDONE
     Indication: Psychotic symptom
     Dosage: 1 MG, 2 TIMES PER DAY (EVERY 12 HRS)
     Route: 048
  2. OLANZAPINE [Suspect]
     Active Substance: OLANZAPINE
     Indication: Catatonia
     Dosage: 2.5 MG, ONCE PER DAY
  3. ARIPIPRAZOLE [Suspect]
     Active Substance: ARIPIPRAZOLE
     Indication: Catatonia
     Dosage: 7.5 MG, ONCE PER DAY
  4. LORAZEPAM [Concomitant]
     Active Substance: LORAZEPAM
     Indication: Catatonia
     Dosage: 20 MG, ONCE PER DAY
  5. LORAZEPAM [Concomitant]
     Active Substance: LORAZEPAM
     Dosage: 28 MG, ONCE PER DAY (INCREASED)

REACTIONS (2)
  - Catatonia [Recovered/Resolved]
  - Condition aggravated [Recovered/Resolved]
